FAERS Safety Report 7552606-9 (Version None)
Quarter: 2011Q2

REPORT INFORMATION
  Report Type: 
  Country: None (occurrence: None)
  Receive Date: 20110616
  Receipt Date: 20110301
  Transmission Date: 20111010
  Serious: No
  Sender: FDA-Public Use
  Company Number: US-MYLANLABS-2011S1004296

PATIENT

DRUGS (1)
  1. TRAZODONE HCL [Suspect]

REACTIONS (3)
  - DIZZINESS [None]
  - HEADACHE [None]
  - DEPRESSION [None]
